FAERS Safety Report 18240719 (Version 3)
Quarter: 2021Q1

REPORT INFORMATION
  Report Type: Spontaneous
  Country: US (occurrence: US)
  Receive Date: 20200908
  Receipt Date: 20210202
  Transmission Date: 20210419
  Serious: Yes (Hospitalization, Other)
  Sender: FDA-Public Use
  Company Number: US-ALNYLAM PHARMACEUTICALS, INC.-ALN-2020-001579

PATIENT

DRUGS (7)
  1. GIVLAARI [Suspect]
     Active Substance: GIVOSIRAN SODIUM
     Dosage: 2.5 MILLIGRAM
     Route: 058
     Dates: start: 202004
  2. HEMIN [Concomitant]
     Active Substance: HEMIN
     Indication: PORPHYRIA ACUTE
  3. GIVLAARI [Suspect]
     Active Substance: GIVOSIRAN SODIUM
     Dosage: UNK
     Route: 058
  4. METOCLOPRAMIDE. [Concomitant]
     Active Substance: METOCLOPRAMIDE
     Indication: PRODUCT USED FOR UNKNOWN INDICATION
     Dosage: UNK, PRN
  5. GIVLAARI [Suspect]
     Active Substance: GIVOSIRAN SODIUM
     Indication: PORPHYRIA ACUTE
     Dosage: 1.25 MILLIGRAM/KILOGRAM, MONTHLY
     Route: 042
     Dates: start: 20200928
  6. LUBIPROSTONE [Concomitant]
     Active Substance: LUBIPROSTONE
     Indication: PRODUCT USED FOR UNKNOWN INDICATION
  7. ZOFRAN [Concomitant]
     Active Substance: ONDANSETRON HYDROCHLORIDE
     Indication: PRODUCT USED FOR UNKNOWN INDICATION
     Dosage: UNK UNK, PRN

REACTIONS (11)
  - Pancreatitis acute [Recovering/Resolving]
  - Peripheral artery thrombosis [Unknown]
  - Decreased appetite [Recovering/Resolving]
  - Discomfort [Unknown]
  - Central venous catheterisation [Unknown]
  - Abdominal distension [Unknown]
  - Aspartate aminotransferase increased [Recovered/Resolved]
  - Deep vein thrombosis [Unknown]
  - Alanine aminotransferase increased [Recovering/Resolving]
  - Axillary vein thrombosis [Unknown]
  - Nausea [Recovering/Resolving]

NARRATIVE: CASE EVENT DATE: 20201102
